FAERS Safety Report 4544557-9 (Version None)
Quarter: 2004Q4

REPORT INFORMATION
  Report Type: 
  Country: None (occurrence: None)
  Receive Date: 20041230
  Receipt Date: 20041214
  Transmission Date: 20050328
  Serious: Yes (Hospitalization)
  Sender: FDA-Public Use
  Company Number: 2004-00456

PATIENT
  Age: 76 Year
  Sex: Male

DRUGS (1)
  1. IMMUCYST (BCG - IT (CONNAUGHT)), AVENTIS PASTEUR LTD., LOT NOT REP [Suspect]
     Indication: BENIGN NEOPLASM OF BLADDER
     Dosage: 2 INSTILLATIONS OF 81 MG (81.0 MG)
     Dates: start: 20031001

REACTIONS (10)
  - BACTERIURIA [None]
  - ENTEROBACTER INFECTION [None]
  - HAEMATURIA [None]
  - KLEBSIELLA INFECTION [None]
  - ORCHITIS [None]
  - OVERDOSE [None]
  - PATHOGEN RESISTANCE [None]
  - POST PROCEDURAL COMPLICATION [None]
  - PROSTATITIS [None]
  - RENAL IMPAIRMENT [None]
